FAERS Safety Report 14735266 (Version 2)
Quarter: 2018Q2

REPORT INFORMATION
  Report Type: Report from Study
  Country: AU (occurrence: AU)
  Receive Date: 20180409
  Receipt Date: 20180514
  Transmission Date: 20180711
  Serious: Yes (Hospitalization)
  Sender: FDA-Public Use
  Company Number: AU-REGENERON PHARMACEUTICALS, INC.-2018-20003

PATIENT

DRUGS (3)
  1. CHLORHEXIDINE [Concomitant]
     Active Substance: CHLORHEXIDINE
     Indication: PRODUCT USED FOR UNKNOWN INDICATION
     Dosage: UNK
     Dates: start: 201802
  2. EYLEA [Suspect]
     Active Substance: AFLIBERCEPT
     Indication: NEOVASCULAR AGE-RELATED MACULAR DEGENERATION
     Dosage: LEFT EYE
     Route: 031
     Dates: start: 201706
  3. EYLEA [Suspect]
     Active Substance: AFLIBERCEPT
     Dosage: LEFT EYE
     Route: 031
     Dates: start: 201802

REACTIONS (7)
  - Reaction to preservatives [Unknown]
  - Vision blurred [Not Recovered/Not Resolved]
  - Vitreous floaters [Not Recovered/Not Resolved]
  - Vision blurred [Recovered/Resolved]
  - Foreign body sensation in eyes [Recovered/Resolved]
  - Visual impairment [Not Recovered/Not Resolved]
  - Drug hypersensitivity [Unknown]

NARRATIVE: CASE EVENT DATE: 2017
